APPROVED DRUG PRODUCT: BOSENTAN
Active Ingredient: BOSENTAN
Strength: 62.5MG
Dosage Form/Route: TABLET;ORAL
Application: A210342 | Product #001
Applicant: CHARTWELL MOLECULAR HOLDINGS LLC
Approved: Jan 3, 2020 | RLD: No | RS: No | Type: DISCN